FAERS Safety Report 5965899-6 (Version None)
Quarter: 2008Q4

REPORT INFORMATION
  Report Type: 
  Country: None (occurrence: None)
  Receive Date: 20081121
  Receipt Date: 20081121
  Transmission Date: 20090506
  Serious: Yes (Hospitalization)
  Sender: FDA-Public Use
  Company Number: None

PATIENT
  Age: 57 Year
  Sex: Male
  Weight: 90 kg

DRUGS (2)
  1. ASPIRIN AND DIPYRIDAMOLE [Suspect]
     Indication: CEREBROVASCULAR ACCIDENT
     Dosage: 25/200 EVERY DAY PO  : 1 GM BID PO
     Route: 048
     Dates: start: 20081009, end: 20081017
  2. ASPIRIN AND DIPYRIDAMOLE [Suspect]
     Indication: HYPERLIPIDAEMIA
     Dosage: 25/200 EVERY DAY PO  : 1 GM BID PO
     Route: 048
     Dates: start: 20081009, end: 20081017

REACTIONS (1)
  - PANCREATITIS [None]
